FAERS Safety Report 4939392-3 (Version None)
Quarter: 2006Q1

REPORT INFORMATION
  Report Type: 
  Country: None (occurrence: None)
  Receive Date: 20060306
  Receipt Date: 20060226
  Transmission Date: 20060701
  Serious: Yes (Death, Other)
  Sender: FDA-Public Use
  Company Number: 2005-11-1327

PATIENT
  Age: 64 Year
  Sex: Female
  Weight: 72 kg

DRUGS (6)
  1. TEMODAL [Suspect]
     Indication: GLIOBLASTOMA
     Dosage: ORAL
     Route: 048
     Dates: start: 20050922, end: 20051031
  2. FORTECORTIN TABLETS [Concomitant]
  3. FORTECORTIN TABLETS [Concomitant]
  4. NEXIUM [Concomitant]
  5. L-THYROXIN TABLETS [Concomitant]
  6. ISOPTIN [Concomitant]

REACTIONS (4)
  - LEUKOPENIA [None]
  - PNEUMONIA FUNGAL [None]
  - SEPSIS [None]
  - THROMBOCYTOPENIA [None]
